FAERS Safety Report 12616897 (Version 3)
Quarter: 2021Q2

REPORT INFORMATION
  Report Type: Spontaneous
  Country: US (occurrence: US)
  Receive Date: 20160802
  Receipt Date: 20210529
  Transmission Date: 20210716
  Serious: Yes (Life-Threatening, Hospitalization, Other)
  Sender: FDA-Public Use
  Company Number: US-JNJFOC-20160720136

PATIENT
  Age: 36 Year
  Sex: Female
  Weight: 68 kg

DRUGS (6)
  1. VICODIN [Suspect]
     Active Substance: ACETAMINOPHEN\HYDROCODONE BITARTRATE
     Indication: PRODUCT USED FOR UNKNOWN INDICATION
     Dosage: 4,000 MG FOR 1 DAY
     Route: 065
     Dates: start: 19990916, end: 19990916
  2. TYLENOL SINUS UNSPECIFIED (PARACETAMOL\PSEUDOEPHEDRINE HYDROCHLORIDE) [Suspect]
     Active Substance: ACETAMINOPHEN\PSEUDOEPHEDRINE HYDROCHLORIDE
     Indication: PRODUCT USED FOR UNKNOWN INDICATION
     Dosage: 10,400 MG/DAY TAKEN OVER A 4 DAY PERIOD
     Route: 065
     Dates: start: 199909, end: 19990915
  3. PAXIL [Concomitant]
     Active Substance: PAROXETINE HYDROCHLORIDE
     Indication: PRODUCT USED FOR UNKNOWN INDICATION
     Dosage: 20 MG DAILY FOR 12 MONTHS
     Route: 065
     Dates: end: 19990916
  4. ERYTHROMYCIN. [Concomitant]
     Active Substance: ERYTHROMYCIN
     Indication: PRODUCT USED FOR UNKNOWN INDICATION
     Dosage: DOSE UNKNOWN
     Route: 065
     Dates: start: 19990914, end: 19990914
  5. BACTRIM DS [Concomitant]
     Active Substance: SULFAMETHOXAZOLE\TRIMETHOPRIM
     Indication: PRODUCT USED FOR UNKNOWN INDICATION
     Dosage: FOR 2 DAYS, DOSE UNKNOWN
     Route: 065
     Dates: end: 19990915
  6. PRILOSEC [Concomitant]
     Active Substance: OMEPRAZOLE MAGNESIUM
     Indication: PRODUCT USED FOR UNKNOWN INDICATION
     Dosage: 20 MG DAILY FOR 12 MONTHS
     Route: 065
     Dates: end: 19990916

REACTIONS (5)
  - Blood creatinine increased [Not Recovered/Not Resolved]
  - Arrhythmia [Recovered/Resolved]
  - Product administration error [Recovering/Resolving]
  - Overdose [Recovering/Resolving]
  - Acute hepatic failure [Recovering/Resolving]

NARRATIVE: CASE EVENT DATE: 19990914
